FAERS Safety Report 13554900 (Version 1)
Quarter: 2017Q2

REPORT INFORMATION
  Report Type: Spontaneous
  Country: US (occurrence: US)
  Receive Date: 20170516
  Receipt Date: 20170516
  Transmission Date: 20170830
  Serious: Yes (Hospitalization)
  Sender: FDA-Public Use
  Company Number: None

PATIENT
  Age: 65 Year
  Sex: Male
  Weight: 69.8 kg

DRUGS (2)
  1. LITHIUM. [Suspect]
     Active Substance: LITHIUM
     Indication: DEPRESSION
     Route: 048
     Dates: start: 20150825, end: 20151002
  2. LITHIUM. [Suspect]
     Active Substance: LITHIUM
     Indication: MOOD DISORDER DUE TO A GENERAL MEDICAL CONDITION
     Route: 048
     Dates: start: 20150825, end: 20151002

REACTIONS (6)
  - Diarrhoea [None]
  - Vomiting [None]
  - Hyponatraemia [None]
  - Tachypnoea [None]
  - Hypotension [None]
  - Nausea [None]

NARRATIVE: CASE EVENT DATE: 20151001
